FAERS Safety Report 5770905-8 (Version None)
Quarter: 2008Q2

REPORT INFORMATION
  Report Type: 
  Country: None (occurrence: None)
  Receive Date: 20080613
  Receipt Date: 20080530
  Transmission Date: 20081010
  Serious: Yes (Hospitalization)
  Sender: FDA-Public Use
  Company Number: US-ABBOTT-08P-163-0452633-00

PATIENT
  Sex: Female
  Weight: 53.572 kg

DRUGS (13)
  1. HUMIRA [Suspect]
     Indication: CROHN'S DISEASE
     Route: 058
     Dates: start: 20080514
  2. HUMIRA [Suspect]
     Route: 058
     Dates: start: 20080423, end: 20080423
  3. HUMIRA [Suspect]
     Route: 058
     Dates: start: 20080409, end: 20080409
  4. PREDNISONE TAB [Concomitant]
     Indication: CROHN'S DISEASE
     Route: 048
     Dates: start: 20080101
  5. OPIUM DROPS [Concomitant]
     Indication: DIARRHOEA
     Dosage: 4-5 DROPS DURING DAY, 12-16 DROPS AT HS
     Route: 048
     Dates: start: 20080101
  6. COLESTYRAMINE [Concomitant]
     Indication: DIARRHOEA
     Route: 048
  7. POTASSIUM-SANDOZ [Concomitant]
     Indication: MINERAL SUPPLEMENTATION
     Route: 048
  8. ERGOCALCIFEROL [Concomitant]
     Indication: VITAMIN SUPPLEMENTATION
     Route: 048
     Dates: start: 20080312
  9. CALCIUM MAGNESIUM ZINC [Concomitant]
     Indication: OSTEOPOROSIS
     Route: 048
     Dates: start: 20080501
  10. HYDROXOCOBALAMIN [Concomitant]
     Indication: CROHN'S DISEASE
     Route: 048
  11. FUROSEMIDE [Concomitant]
     Indication: HYPERTENSION
     Route: 048
  12. LOPERAMIDE HYDROCHLORIDE [Concomitant]
     Indication: DIARRHOEA
     Route: 048
  13. FOLIC ACID [Concomitant]
     Indication: DRUG USE FOR UNKNOWN INDICATION
     Route: 048

REACTIONS (3)
  - BACTERIAL SEPSIS [None]
  - WEIGHT INCREASED [None]
  - WHITE BLOOD CELL COUNT INCREASED [None]
